FAERS Safety Report 6921932-6 (Version None)
Quarter: 2010Q3

REPORT INFORMATION
  Report Type: 
  Country: None (occurrence: None)
  Receive Date: 20100812
  Receipt Date: 20100806
  Transmission Date: 20110219
  Serious: Yes (Death, Life-Threatening, Hospitalization)
  Sender: FDA-Public Use
  Company Number: IN-ELI_LILLY_AND_COMPANY-IN201008002265

PATIENT
  Age: 40 Year
  Sex: Male

DRUGS (4)
  1. XIGRIS [Suspect]
     Indication: MULTI-ORGAN FAILURE
     Dosage: UNK, UNKNOWN
     Route: 065
     Dates: start: 20100805, end: 20100806
  2. ANTIBIOTICS [Concomitant]
     Indication: MULTI-ORGAN FAILURE
     Dosage: UNK, UNKNOWN
     Route: 065
     Dates: start: 20100805
  3. HAEMODIALYTICS AND HAEMOFILTRATES [Concomitant]
  4. OXYGEN [Concomitant]

REACTIONS (5)
  - CARDIAC ARREST [None]
  - INTERNATIONAL NORMALISED RATIO INCREASED [None]
  - MULTI-ORGAN FAILURE [None]
  - SEPSIS [None]
  - THROMBOCYTOPENIA [None]
